FAERS Safety Report 24867277 (Version 1)
Quarter: 2025Q1

REPORT INFORMATION
  Report Type: Spontaneous
  Country: US (occurrence: US)
  Receive Date: 20250121
  Receipt Date: 20250121
  Transmission Date: 20250409
  Serious: No
  Sender: PERRIGO
  Company Number: US-PERRIGO-24US012090

PATIENT

DRUGS (1)
  1. NICOTINE POLACRILEX [Suspect]
     Active Substance: NICOTINE
     Indication: COVID-19
     Route: 002

REACTIONS (4)
  - Pharyngeal swelling [Recovered/Resolved]
  - Malaise [Unknown]
  - Hiccups [Recovered/Resolved]
  - Product use in unapproved indication [Unknown]
